FAERS Safety Report 9416164 (Version 1)
Quarter: 2013Q3

REPORT INFORMATION
  Report Type: Spontaneous
  Country: US (occurrence: None)
  Receive Date: 20130723
  Receipt Date: 20130723
  Transmission Date: 20140515
  Serious: Yes (Hospitalization)
  Sender: FDA-Public Use
  Company Number: None

PATIENT
  Age: 38 Year
  Sex: Male
  Weight: 67.99 kg

DRUGS (2)
  1. DEPO-MEDROL [Suspect]
     Indication: MUSCULOSKELETAL PAIN
     Dosage: 80 MG, 2 CC
     Dates: start: 20130603
  2. LIDOCAINE [Suspect]
     Indication: MUSCULOSKELETAL PAIN
     Dosage: 20 MG 1CC
     Dates: start: 20130603

REACTIONS (2)
  - Injection site abscess [None]
  - Staphylococcal abscess [None]
